FAERS Safety Report 9014306 (Version 2)
Quarter: 2013Q1

REPORT INFORMATION
  Report Type: Spontaneous
  Country: US (occurrence: US)
  Receive Date: 20130115
  Receipt Date: 20130214
  Transmission Date: 20140127
  Serious: Yes (Other)
  Sender: FDA-Public Use
  Company Number: US-PFIZER INC-2013015075

PATIENT
  Age: 12 Year
  Sex: Male
  Weight: 54 kg

DRUGS (2)
  1. ZOLOFT [Suspect]
     Indication: MAJOR DEPRESSION
     Dosage: 50 MG, 1X/DAY
     Route: 048
     Dates: start: 20100909
  2. ZOLOFT [Suspect]
     Indication: GENERALISED ANXIETY DISORDER

REACTIONS (1)
  - Liver function test abnormal [Not Recovered/Not Resolved]
